FAERS Safety Report 18411684 (Version 5)
Quarter: 2021Q3

REPORT INFORMATION
  Report Type: Spontaneous
  Country: PT (occurrence: PT)
  Receive Date: 20201021
  Receipt Date: 20210823
  Transmission Date: 20211014
  Serious: Yes (Hospitalization, Other)
  Sender: FDA-Public Use
  Company Number: PT-MYLANLABS-2020M1088306

PATIENT
  Age: 78 Year
  Sex: Male

DRUGS (4)
  1. BISOPROLOL [Interacting]
     Active Substance: BISOPROLOL
     Indication: ATRIAL FIBRILLATION
     Dosage: UNK
  2. AMIODARONE [Suspect]
     Active Substance: AMIODARONE
     Indication: ATRIAL FIBRILLATION
     Dosage: UNK
  3. APIXABAN [Interacting]
     Active Substance: APIXABAN
     Indication: ATRIAL FIBRILLATION
     Dosage: UNK
  4. LEVOTHYROXINE. [Concomitant]
     Active Substance: LEVOTHYROXINE
     Dosage: UNK

REACTIONS (24)
  - Blood thyroid stimulating hormone increased [Recovered/Resolved]
  - Off label use [Unknown]
  - Subdural haematoma [Recovered/Resolved]
  - Thyroiditis [Recovered/Resolved]
  - Constipation [Recovered/Resolved]
  - Sinus bradycardia [Recovered/Resolved]
  - Drug interaction [Recovered/Resolved]
  - Anaemia macrocytic [Recovered/Resolved]
  - Hyponatraemia [Recovered/Resolved]
  - Cold sweat [Recovered/Resolved]
  - Dysarthria [Recovered/Resolved]
  - Somnolence [Recovered/Resolved]
  - Gait disturbance [Recovered/Resolved]
  - Thyroid disorder [Recovered/Resolved]
  - Disorientation [Recovered/Resolved]
  - Skin discolouration [Recovered/Resolved]
  - Contraindicated product administered [Unknown]
  - Fall [Recovered/Resolved]
  - Flushing [Recovered/Resolved]
  - Brain herniation [Recovered/Resolved]
  - Atrioventricular block first degree [Recovered/Resolved]
  - Bradycardia [Recovered/Resolved]
  - Thyroxine free decreased [Recovered/Resolved]
  - Sluggishness [Recovered/Resolved]
